FAERS Safety Report 5054267-X (Version None)
Quarter: 2006Q3

REPORT INFORMATION
  Report Type: 
  Country: None (occurrence: None)
  Receive Date: 20060713
  Receipt Date: 20060626
  Transmission Date: 20061208
  Serious: Yes (Other)
  Sender: FDA-Public Use
  Company Number: CHPA2006US06576

PATIENT
  Age: 56 Year
  Sex: Female
  Weight: 77.1 kg

DRUGS (7)
  1. PRIVATE LABEL    (NICOTINE)        TRANS-THERAPEUTIC-SYSTEM [Suspect]
     Indication: SMOKING CESSATION THERAPY
     Dosage: 21 MG, QD, TRANSDERMAL
     Route: 062
     Dates: start: 20060626
  2. ADVAIR DISKUS 100/50 [Concomitant]
  3. CELEXA [Concomitant]
  4. LUNESTA [Concomitant]
  5. COMBIVENT [Concomitant]
  6. KELXIN [Concomitant]
  7. NAPROXEN [Concomitant]

REACTIONS (3)
  - FEELING ABNORMAL [None]
  - HYPOAESTHESIA [None]
  - PARAESTHESIA [None]
